FAERS Safety Report 15613498 (Version 1)
Quarter: 2018Q4

REPORT INFORMATION
  Report Type: Spontaneous
  Country: US (occurrence: US)
  Receive Date: 20181113
  Receipt Date: 20181113
  Transmission Date: 20190205
  Serious: Yes (Other)
  Sender: FDA-Public Use
  Company Number: PHHY2018US153483

PATIENT

DRUGS (2)
  1. 5 FU [Suspect]
     Active Substance: FLUOROURACIL
     Indication: ADENOCARCINOMA PANCREAS
     Dosage: 200 MG/M2, QD
     Route: 041
  2. OXALIPLATIN. [Suspect]
     Active Substance: OXALIPLATIN
     Indication: ADENOCARCINOMA PANCREAS
     Dosage: 30 MG/M2, QW
     Route: 065

REACTIONS (2)
  - Pulmonary embolism [Unknown]
  - Product use in unapproved indication [Unknown]
